FAERS Safety Report 4640054-0 (Version None)
Quarter: 2005Q2

REPORT INFORMATION
  Report Type: 
  Country: None (occurrence: None)
  Receive Date: 20050415
  Receipt Date: 20050404
  Transmission Date: 20051028
  Serious: No
  Sender: FDA-Public Use
  Company Number: 2005UW05444

PATIENT
  Sex: Female

DRUGS (4)
  1. NOLVADEX [Suspect]
     Indication: BREAST CANCER
     Dates: start: 20000101, end: 20050301
  2. GLYBURIDE [Concomitant]
  3. METFORMIN HCL [Concomitant]
  4. INDAPAMIDE [Concomitant]

REACTIONS (3)
  - BLINDNESS UNILATERAL [None]
  - CATARACT [None]
  - VISION BLURRED [None]
